FAERS Safety Report 5063989-6 (Version None)
Quarter: 2006Q3

REPORT INFORMATION
  Report Type: 
  Country: None (occurrence: None)
  Receive Date: 20060703
  Receipt Date: 20050913
  Transmission Date: 20061208
  Serious: No
  Sender: FDA-Public Use
  Company Number: 2005S1009018

PATIENT
  Age: 43 Year
  Sex: Male
  Weight: 68.0396 kg

DRUGS (7)
  1. CLOZAPINE [Suspect]
     Indication: AFFECTIVE DISORDER
     Dosage: 300 MG;HS;PO
     Route: 048
     Dates: start: 20030616
  2. CLOZAPINE [Suspect]
     Indication: BIPOLAR DISORDER
     Dosage: 300 MG;HS;PO
     Route: 048
     Dates: start: 20030616
  3. CLOZAPINE [Suspect]
     Indication: MANIA
     Dosage: 300 MG;HS;PO
     Route: 048
     Dates: start: 20030616
  4. GABAPENTIN [Concomitant]
  5. FENOFIBRATE [Concomitant]
  6. OLMESARTAN [Concomitant]
  7. ATORVASTATIN CALCIUM [Concomitant]

REACTIONS (1)
  - LEUKOPENIA [None]
